FAERS Safety Report 25977958 (Version 1)
Quarter: 2025Q4

REPORT INFORMATION
  Report Type: Other
  Country: EU (occurrence: EU)
  Receive Date: 20251030
  Receipt Date: 20251030
  Transmission Date: 20260118
  Serious: Yes (Hospitalization)
  Sender: BIOCON
  Company Number: EU-AMGEN-CANSP2025203305

PATIENT

DRUGS (10)
  1. ADALIMUMAB [Suspect]
     Active Substance: ADALIMUMAB
     Indication: Takayasu^s arteritis
     Dosage: UNK
     Route: 065
  2. ADALIMUMAB [Suspect]
     Active Substance: ADALIMUMAB
  3. ADALIMUMAB [Suspect]
     Active Substance: ADALIMUMAB
  4. ADALIMUMAB [Suspect]
     Active Substance: ADALIMUMAB
  5. ADALIMUMAB [Suspect]
     Active Substance: ADALIMUMAB
  6. ETANERCEPT [Suspect]
     Active Substance: ETANERCEPT
     Indication: Takayasu^s arteritis
     Dosage: UNK
     Route: 065
  7. INFLIXIMAB [Suspect]
     Active Substance: INFLIXIMAB
     Indication: Takayasu^s arteritis
     Dosage: UNK
     Route: 065
  8. METHOTREXATE [Concomitant]
     Active Substance: METHOTREXATE
     Indication: Takayasu^s arteritis
     Dosage: UNK
     Route: 065
  9. HYDROXYCHLOROQUINE [Concomitant]
     Active Substance: HYDROXYCHLOROQUINE
     Indication: Takayasu^s arteritis
     Dosage: UNK
     Route: 065
  10. TOCILIZUMAB [Concomitant]
     Active Substance: TOCILIZUMAB
     Indication: Takayasu^s arteritis
     Dosage: UNK
     Route: 065

REACTIONS (6)
  - Aortic aneurysm [Unknown]
  - Vascular graft thrombosis [Unknown]
  - Aortic pseudoaneurysm [Unknown]
  - Myocardial infarction [Unknown]
  - Cardiac failure chronic [Unknown]
  - Off label use [Unknown]
